FAERS Safety Report 19723137 (Version 4)
Quarter: 2023Q4

REPORT INFORMATION
  Report Type: Report from Study
  Country: US (occurrence: US)
  Receive Date: 20210820
  Receipt Date: 20231115
  Transmission Date: 20240110
  Serious: Yes (Hospitalization, Other)
  Sender: FDA-Public Use
  Company Number: US-ACADIA PHARMACEUTICALS INC.-ACA-2021-PIM-002787

PATIENT
  Sex: Male

DRUGS (22)
  1. NUPLAZID [Suspect]
     Active Substance: PIMAVANSERIN TARTRATE
     Indication: Parkinson^s disease
     Dosage: 34 MILLIGRAM, QD, EVERY NIGHT AT BEDTIME
     Route: 048
     Dates: start: 20181225
  2. AMANTADINE [Concomitant]
     Active Substance: AMANTADINE
  3. BACLOFEN [Concomitant]
     Active Substance: BACLOFEN
  4. BD hypo needle Mis [Concomitant]
  5. BUPROPION HYDROCHLORIDE [Concomitant]
     Active Substance: BUPROPION HYDROCHLORIDE
  6. CLONAZEPAM [Concomitant]
     Active Substance: CLONAZEPAM
  7. DULOXETINE [Concomitant]
     Active Substance: DULOXETINE
  8. freestyle [Concomitant]
  9. GABAPENTIN [Concomitant]
     Active Substance: GABAPENTIN
  10. HUMALOG HD KWIKPEN [Concomitant]
  11. LORAZEPAM [Concomitant]
     Active Substance: LORAZEPAM
  12. METFORMIN [Concomitant]
     Active Substance: METFORMIN HYDROCHLORIDE
  13. METOPROLOL [Concomitant]
     Active Substance: METOPROLOL
  14. OMEPRAZOLE [Concomitant]
     Active Substance: OMEPRAZOLE
  15. OXYBUTYNIN [Concomitant]
     Active Substance: OXYBUTYNIN
  16. QUETIAPINE [Concomitant]
     Active Substance: QUETIAPINE
  17. ROPINIROLE [Concomitant]
     Active Substance: ROPINIROLE
  18. RYTARY [Concomitant]
     Active Substance: CARBIDOPA\LEVODOPA
  19. SIMVASTATIN [Concomitant]
     Active Substance: SIMVASTATIN
  20. TAMSULOSIN [Concomitant]
     Active Substance: TAMSULOSIN
  21. TESTOSTERONE CYPIONATE [Concomitant]
     Active Substance: TESTOSTERONE CYPIONATE
  22. TOUJEO MAX [Concomitant]
     Active Substance: INSULIN GLARGINE

REACTIONS (6)
  - Osteomyelitis [Not Recovered/Not Resolved]
  - Toe amputation [Not Recovered/Not Resolved]
  - Nonspecific reaction [Not Recovered/Not Resolved]
  - Nonspecific reaction [Unknown]
  - Condition aggravated [Not Recovered/Not Resolved]
  - Condition aggravated [Unknown]
